FAERS Safety Report 6194975-0 (Version None)
Quarter: 2009Q2

REPORT INFORMATION
  Report Type: 
  Country: None (occurrence: None)
  Receive Date: 20090519
  Receipt Date: 20090511
  Transmission Date: 20091009
  Serious: Yes (Hospitalization)
  Sender: FDA-Public Use
  Company Number: A0696642A

PATIENT
  Age: 57 Year
  Sex: Female
  Weight: 72.7 kg

DRUGS (6)
  1. AVANDIA [Suspect]
     Dosage: 4MG PER DAY
     Route: 048
     Dates: start: 20060201, end: 20071201
  2. GLUCOPHAGE [Concomitant]
     Dates: start: 19890101
  3. METFORMIN HCL [Concomitant]
  4. INSULIN [Concomitant]
  5. DIOVAN [Concomitant]
  6. TAMOXIFEN CITRATE [Concomitant]

REACTIONS (2)
  - CARDIAC FAILURE CONGESTIVE [None]
  - INJURY [None]
